FAERS Safety Report 13352519 (Version 1)
Quarter: 2017Q1

REPORT INFORMATION
  Report Type: Spontaneous
  Country: US (occurrence: US)
  Receive Date: 20170320
  Receipt Date: 20170320
  Transmission Date: 20170429
  Serious: No
  Sender: FDA-Public Use
  Company Number: US-ALLERGAN-1652050US

PATIENT
  Age: 67 Year
  Sex: Female
  Weight: 73.16 kg

DRUGS (3)
  1. OXYTROL [Suspect]
     Active Substance: OXYBUTYNIN
     Indication: HYPERTONIC BLADDER
     Dosage: 1 DF, UNK
     Route: 062
     Dates: start: 201602
  2. OXYTROL [Suspect]
     Active Substance: OXYBUTYNIN
     Dosage: 1 UNK, UNK
     Route: 062
     Dates: start: 201602
  3. VITAMIN C [Concomitant]
     Active Substance: ASCORBIC ACID
     Indication: NUTRITIONAL SUPPLEMENTATION
     Route: 048

REACTIONS (2)
  - Drug ineffective [Unknown]
  - Product use issue [Not Recovered/Not Resolved]
